FAERS Safety Report 25988332 (Version 1)
Quarter: 2025Q4

REPORT INFORMATION
  Report Type: Spontaneous
  Country: EU (occurrence: EU)
  Receive Date: 20251103
  Receipt Date: 20251103
  Transmission Date: 20260118
  Serious: Yes (Other)
  Sender: DR REDDYS
  Company Number: None

PATIENT
  Sex: Male

DRUGS (1)
  1. AZACITIDINE [Suspect]
     Active Substance: AZACITIDINE
     Indication: VEXAS syndrome
     Dosage: 100MG/M2 FOR 5 DAYS)

REACTIONS (6)
  - Escherichia bacteraemia [Unknown]
  - Device related infection [Unknown]
  - Herpes simplex reactivation [Unknown]
  - COVID-19 [Unknown]
  - Off label use [Unknown]
  - Bacterial infection [Unknown]
